FAERS Safety Report 16740332 (Version 2)
Quarter: 2019Q3

REPORT INFORMATION
  Report Type: Spontaneous
  Country: US (occurrence: US)
  Receive Date: 20190826
  Receipt Date: 20190920
  Transmission Date: 20191005
  Serious: No
  Sender: FDA-Public Use
  Company Number: US-PFIZER INC-2019266779

PATIENT
  Age: 58 Year
  Sex: Female

DRUGS (1)
  1. XELJANZ XR [Suspect]
     Active Substance: TOFACITINIB CITRATE
     Indication: FIBROMYALGIA
     Dosage: 11 MG, UNK

REACTIONS (5)
  - Insomnia [Unknown]
  - General physical health deterioration [Unknown]
  - Product use in unapproved indication [Unknown]
  - Off label use [Unknown]
  - Intentional product misuse [Unknown]
